FAERS Safety Report 15601197 (Version 1)
Quarter: 2018Q4

REPORT INFORMATION
  Report Type: Spontaneous
  Country: US (occurrence: US)
  Receive Date: 20181109
  Receipt Date: 20181109
  Transmission Date: 20190205
  Serious: Yes (Hospitalization)
  Sender: FDA-Public Use
  Company Number: US-PFIZER INC-2018449284

PATIENT
  Age: 62 Year
  Sex: Female
  Weight: 85.73 kg

DRUGS (2)
  1. TIKOSYN [Suspect]
     Active Substance: DOFETILIDE
     Indication: ATRIAL FIBRILLATION
     Dosage: 250 MG, 2X/DAY
     Route: 048
     Dates: start: 201708, end: 20181024
  2. TIKOSYN [Suspect]
     Active Substance: DOFETILIDE
     Dosage: 125 MG, 3 CAPSULES TWICE DAILY
     Route: 048
     Dates: start: 20181025

REACTIONS (3)
  - Palpitations [Unknown]
  - Dyspnoea [Unknown]
  - Product use issue [Unknown]

NARRATIVE: CASE EVENT DATE: 20181024
